FAERS Safety Report 10654059 (Version 1)
Quarter: 2014Q4

REPORT INFORMATION
  Report Type: Spontaneous
  Country: US (occurrence: None)
  Receive Date: 20141215
  Receipt Date: 20141215
  Transmission Date: 20150529
  Serious: Yes (Hospitalization)
  Sender: FDA-Public Use
  Company Number: None

PATIENT
  Age: 74 Year
  Sex: Male
  Weight: 66.4 kg

DRUGS (14)
  1. SPIRONOLACTONE. [Concomitant]
     Active Substance: SPIRONOLACTONE
  2. UDDERLY SMOOTH EXTRA CARE 20 [Concomitant]
  3. LORAZEPAM. [Concomitant]
     Active Substance: LORAZEPAM
  4. NADOLOL. [Concomitant]
     Active Substance: NADOLOL
  5. PROCHLORPERAZINE. [Concomitant]
     Active Substance: PROCHLORPERAZINE
  6. LACTULOSE. [Concomitant]
     Active Substance: LACTULOSE
  7. OXYCODONE [Concomitant]
     Active Substance: OXYCODONE
  8. ONDANSETRON [Concomitant]
     Active Substance: ONDANSETRON
  9. RIFAXIMIN [Concomitant]
     Active Substance: RIFAXIMIN
  10. VENTOLIN [Concomitant]
     Active Substance: ALBUTEROL SULFATE
  11. SORAFENIB [Suspect]
     Active Substance: SORAFENIB
     Indication: HEPATOCELLULAR CARCINOMA
     Route: 048
     Dates: start: 20140606, end: 20140807
  12. FUROSEMIDE. [Concomitant]
     Active Substance: FUROSEMIDE
  13. OMEPRAZOLE. [Concomitant]
     Active Substance: OMEPRAZOLE
  14. MAGIC SWIZZLE [Concomitant]

REACTIONS (11)
  - Decreased appetite [None]
  - Lethargy [None]
  - Dysphagia [None]
  - Condition aggravated [None]
  - Constipation [None]
  - No therapeutic response [None]
  - Ammonia increased [None]
  - Somnolence [None]
  - Choking [None]
  - Abnormal behaviour [None]
  - Abdominal pain [None]

NARRATIVE: CASE EVENT DATE: 20140728
